FAERS Safety Report 9960805 (Version 1)
Quarter: 2014Q1

REPORT INFORMATION
  Report Type: Report from Study
  Country: US (occurrence: US)
  Receive Date: 20140305
  Receipt Date: 20140305
  Transmission Date: 20141002
  Serious: No
  Sender: FDA-Public Use
  Company Number: US-ABBVIE-13P-163-1109786-00

PATIENT
  Age: 62 Year
  Sex: Male

DRUGS (11)
  1. HUMIRA [Suspect]
     Indication: CROHN^S DISEASE
     Dates: start: 20130326
  2. LYRICA [Concomitant]
     Indication: NEURALGIA
     Dosage: TAKES LESS THAN PRESCRIBED AMOUNT, MAKES HIM DUMB
  3. HYDROCODONE W/ACETAMINOPHEN [Concomitant]
     Indication: OSTEOARTHRITIS
     Dosage: 5/500, LIMITS MEDICATION
  4. FOLIC ACID [Concomitant]
     Indication: VITAMIN SUPPLEMENTATION
  5. PENTASA [Concomitant]
     Indication: CROHN^S DISEASE
  6. CLARITIN [Concomitant]
     Indication: SEASONAL ALLERGY
     Dosage: DAILY
  7. CLARITIN [Concomitant]
     Indication: HYPERSENSITIVITY
  8. LEVOXYL [Concomitant]
     Indication: THYROID DISORDER
     Dosage: 150MCG DAILY
  9. MULTIVITAMIN [Concomitant]
     Indication: VITAMIN SUPPLEMENTATION
  10. FLOMAX [Concomitant]
     Indication: PRODUCT USED FOR UNKNOWN INDICATION
     Dosage: .4 MG DAILY
  11. RHINOCORT [Concomitant]
     Indication: PRODUCT USED FOR UNKNOWN INDICATION
     Dosage: 1 PUFF, EACH NOSTRIL, DAILY

REACTIONS (1)
  - Rash [Not Recovered/Not Resolved]
